FAERS Safety Report 5367549-9 (Version None)
Quarter: 2007Q2

REPORT INFORMATION
  Report Type: 
  Country: None (occurrence: None)
  Receive Date: 20070622
  Receipt Date: 20061113
  Transmission Date: 20071010
  Serious: No
  Sender: FDA-Public Use
  Company Number: US-ASTRAZENECA-2006UW24091

PATIENT
  Age: 63 Year
  Sex: Male
  Weight: 80.7 kg

DRUGS (2)
  1. PULMICORT RESPULES [Suspect]
     Indication: CHRONIC OBSTRUCTIVE PULMONARY DISEASE
     Route: 055
     Dates: start: 20060601
  2. ATENOLOL [Concomitant]

REACTIONS (4)
  - ERYTHEMA [None]
  - RASH PUSTULAR [None]
  - SKIN DISCOLOURATION [None]
  - SKIN EXFOLIATION [None]
